FAERS Safety Report 21604084 (Version 4)
Quarter: 2025Q3

REPORT INFORMATION
  Report Type: Spontaneous
  Country: EU (occurrence: EU)
  Receive Date: 20221116
  Receipt Date: 20250715
  Transmission Date: 20251021
  Serious: Yes (Congenital Anomaly)
  Sender: PFIZER
  Company Number: None

PATIENT
  Sex: Male

DRUGS (2)
  1. MEDROXYPROGESTERONE ACETATE [Suspect]
     Active Substance: MEDROXYPROGESTERONE ACETATE
     Indication: Contraception
     Route: 064
     Dates: start: 20220207, end: 20220207
  2. STAMARIL [Suspect]
     Active Substance: YELLOW FEVER VIRUS STRAIN 17D-204 LIVE ANTIGEN
     Indication: Yellow fever immunisation
     Route: 064
     Dates: start: 20220204, end: 20220204

REACTIONS (4)
  - Foetal exposure during pregnancy [Recovered/Resolved]
  - Congenital vesicoureteric reflux [Not Recovered/Not Resolved]
  - Renal dysplasia [Not Recovered/Not Resolved]
  - Congenital ureterocele [Not Recovered/Not Resolved]

NARRATIVE: CASE EVENT DATE: 20220207
